FAERS Safety Report 6612595-8 (Version None)
Quarter: 2010Q1

REPORT INFORMATION
  Report Type: 
  Country: None (occurrence: None)
  Receive Date: 20100303
  Receipt Date: 20100225
  Transmission Date: 20100710
  Serious: Yes (Life-Threatening, Other)
  Sender: FDA-Public Use
  Company Number: RO-BAYER-201016083GPV

PATIENT
  Age: 57 Year
  Sex: Male

DRUGS (3)
  1. AVELOX [Suspect]
     Indication: INFLUENZA
     Route: 042
     Dates: start: 20100127, end: 20100203
  2. TAZOCIN [Concomitant]
     Indication: BRONCHOPNEUMONIA
     Route: 042
     Dates: start: 20100127, end: 20100204
  3. DIFLUCAN [Concomitant]
     Indication: ORAL FUNGAL INFECTION
     Route: 048
     Dates: start: 20100127, end: 20100204

REACTIONS (4)
  - DIZZINESS [None]
  - NAUSEA [None]
  - ORTHOSTATIC HYPOTENSION [None]
  - SYNCOPE [None]
